FAERS Safety Report 25968089 (Version 1)
Quarter: 2025Q4

REPORT INFORMATION
  Report Type: Spontaneous
  Country: US (occurrence: US)
  Receive Date: 20251028
  Receipt Date: 20251028
  Transmission Date: 20260117
  Serious: Yes (Other)
  Sender: NOVARTIS
  Company Number: US-002147023-NVSC2025US159939

PATIENT
  Sex: Female

DRUGS (2)
  1. ENTRESTO [Suspect]
     Active Substance: SACUBITRIL\VALSARTAN
     Indication: Product used for unknown indication
     Dosage: UNK, (24/26MG) BID
     Route: 065
  2. METOPROLOL [Concomitant]
     Active Substance: METOPROLOL
     Indication: Product used for unknown indication
     Dosage: UNK
     Route: 065

REACTIONS (6)
  - Mental impairment [Recovering/Resolving]
  - Feeling abnormal [Recovering/Resolving]
  - Fatigue [Recovering/Resolving]
  - Insomnia [Recovering/Resolving]
  - Tinnitus [Recovering/Resolving]
  - Bowel movement irregularity [Recovering/Resolving]
